FAERS Safety Report 10401082 (Version 2)
Quarter: 2014Q3

REPORT INFORMATION
  Report Type: Spontaneous
  Country: US (occurrence: US)
  Receive Date: 20140822
  Receipt Date: 20140822
  Transmission Date: 20150326
  Serious: Yes (Hospitalization, Other)
  Sender: FDA-Public Use
  Company Number: US-AMGEN-USASP2014024249

PATIENT
  Age: 1 Day
  Sex: Female
  Weight: 2.95 kg

DRUGS (4)
  1. NORMODYNE [Concomitant]
     Active Substance: LABETALOL HYDROCHLORIDE
     Indication: HYPERTENSION
     Dosage: 200 MG, BID
     Route: 064
     Dates: start: 201306
  2. ENBREL [Suspect]
     Active Substance: ETANERCEPT
     Indication: EXPOSURE DURING PREGNANCY
     Dosage: UNK UNK, QWK
     Route: 064
     Dates: start: 201210, end: 201305
  3. ZANTAC [Concomitant]
     Active Substance: RANITIDINE HYDROCHLORIDE
     Dosage: 300 UNK, QD
     Route: 064
     Dates: start: 20130612
  4. PLAQUENIL [Concomitant]
     Active Substance: HYDROXYCHLOROQUINE SULFATE
     Indication: RHEUMATOID ARTHRITIS
     Dosage: 200 MG, BID
     Route: 064
     Dates: start: 201209

REACTIONS (1)
  - Umbilical cord around neck [Unknown]

NARRATIVE: CASE EVENT DATE: 20140120
